FAERS Safety Report 8767256 (Version 1)
Quarter: 2012Q4

REPORT INFORMATION
  Report Type: 
  Country: JP (occurrence: JP)
  Receive Date: 20120904
  Receipt Date: 20120904
  Transmission Date: 20130627
  Serious: Yes (Hospitalization)
  Sender: FDA-Public Use
  Company Number: JP-GLAXOSMITHKLINE-B0822403A

PATIENT
  Age: 77 Year
  Sex: Male

DRUGS (4)
  1. VALTREX [Suspect]
     Indication: HERPES SIMPLEX
     Dosage: 1000MG Per day
     Route: 048
     Dates: start: 20110907, end: 20110912
  2. CEFZON [Concomitant]
     Indication: SKIN BACTERIAL INFECTION
     Dosage: 300MG Per day
     Route: 048
     Dates: start: 20110915, end: 20110918
  3. TAGAMET [Concomitant]
     Indication: GASTRITIS
     Dosage: 400MG Per day
     Route: 048
     Dates: start: 20110912, end: 20110920
  4. TERBINAFINE [Concomitant]
     Indication: TINEA PEDIS
     Dosage: 250MG Per day
     Route: 048
     Dates: start: 20110912, end: 20110920

REACTIONS (5)
  - Drug eruption [Recovering/Resolving]
  - Rash [Unknown]
  - Rash pustular [Unknown]
  - Eosinophil count increased [Unknown]
  - Rash [Unknown]
